FAERS Safety Report 6447982-4 (Version None)
Quarter: 2009Q4

REPORT INFORMATION
  Report Type: 
  Country: None (occurrence: None)
  Receive Date: 20091120
  Receipt Date: 20091119
  Transmission Date: 20100525
  Serious: Yes (Death)
  Sender: FDA-Public Use
  Company Number: US-ASTRAZENECA-2009SE27590

PATIENT
  Age: 979 Month
  Sex: Male

DRUGS (5)
  1. SEROQUEL [Suspect]
     Indication: ANXIETY DISORDER
     Route: 048
     Dates: start: 19991007, end: 20010628
  2. RISPERDAL [Concomitant]
     Indication: ANXIETY DISORDER
  3. ZYPREXA [Concomitant]
     Indication: ANXIETY DISORDER
  4. ABILIFY [Concomitant]
  5. HALDOL [Concomitant]

REACTIONS (2)
  - DEATH [None]
  - TYPE 2 DIABETES MELLITUS [None]
